FAERS Safety Report 8167750-5 (Version None)
Quarter: 2012Q1

REPORT INFORMATION
  Report Type: 
  Country: None (occurrence: None)
  Receive Date: 20120227
  Receipt Date: 20120221
  Transmission Date: 20120608
  Serious: No
  Sender: FDA-Public Use
  Company Number: US-PFIZER INC-2012028876

PATIENT
  Sex: Female

DRUGS (4)
  1. LEVOTHYROXINE [Concomitant]
     Dosage: 50 MG, DAILY
  2. LO/OVRAL-28 [Suspect]
     Dosage: UNK (T QD)
     Route: 048
     Dates: end: 20120101
  3. SINGULAIR [Concomitant]
     Dosage: 10 MG, DAILY
  4. SIMVASTATIN [Concomitant]
     Dosage: 80 MG, DAILY

REACTIONS (1)
  - METRORRHAGIA [None]
